FAERS Safety Report 9006376 (Version 3)
Quarter: 2013Q1

REPORT INFORMATION
  Report Type: Spontaneous
  Country: AU (occurrence: AU)
  Receive Date: 20130110
  Receipt Date: 20130306
  Transmission Date: 20140127
  Serious: Yes (Other)
  Sender: FDA-Public Use
  Company Number: AU-AMGEN-AUSSP2013000477

PATIENT
  Age: 78 Year
  Sex: Male

DRUGS (6)
  1. XGEVA [Suspect]
     Indication: METASTASES TO BONE
     Dosage: 120 MG, QMO
     Route: 058
     Dates: start: 20121205, end: 20130103
  2. ANANDRON [Suspect]
     Dosage: 150 MG, BID
  3. PRINIVIL [Concomitant]
  4. NATRILIX                           /00340101/ [Concomitant]
  5. LIPITOR [Concomitant]
  6. CARDIPRIN                          /00002701/ [Concomitant]

REACTIONS (5)
  - Rash pruritic [Recovered/Resolved]
  - Swelling face [Recovered/Resolved]
  - Dyspnoea [Recovered/Resolved]
  - Upper respiratory tract infection [Unknown]
  - Malaise [Recovered/Resolved]
